FAERS Safety Report 22692775 (Version 2)
Quarter: 2024Q3

REPORT INFORMATION
  Report Type: Spontaneous
  Country: US (occurrence: US)
  Receive Date: 20230711
  Receipt Date: 20240722
  Transmission Date: 20241017
  Serious: No
  Sender: ASTELLAS
  Company Number: US-ASTELLAS-2022US024307

PATIENT
  Age: 82 Year
  Sex: Male

DRUGS (3)
  1. MYRBETRIQ [Suspect]
     Active Substance: MIRABEGRON
     Indication: Urinary retention
     Dosage: 12.5 MG, ONCE DAILY (CUT A 25 MG IN HALF)
     Route: 048
     Dates: start: 202206, end: 202206
  2. MYRBETRIQ [Suspect]
     Active Substance: MIRABEGRON
     Dosage: 12.5 MG, ONCE DAILY (CUT A 25 MG IN HALF)
     Route: 048
     Dates: start: 20220629
  3. DIGOXIN [Concomitant]
     Active Substance: DIGOXIN
     Indication: Product used for unknown indication
     Dosage: UNK UNK, UNKNOWN FREQ.
     Route: 065

REACTIONS (3)
  - Dysuria [Recovered/Resolved]
  - Urinary tract infection [Recovered/Resolved]
  - Off label use [Unknown]

NARRATIVE: CASE EVENT DATE: 20220601
